APPROVED DRUG PRODUCT: BEIZRAY
Active Ingredient: DOCETAXEL
Strength: 80MG/4ML (20MG/ML)
Dosage Form/Route: SOLUTION;INTRAVENOUS
Application: N218711 | Product #001
Applicant: ZHUHAI BEIHAI BIOTECH CO LTD
Approved: Oct 23, 2024 | RLD: Yes | RS: Yes | Type: RX

PATENTS:
Patent 11419842 | Expires: May 16, 2036
Patent 11419842 | Expires: May 16, 2036
Patent 11419842 | Expires: May 16, 2036
Patent 11419842 | Expires: May 16, 2036
Patent 11419842 | Expires: May 16, 2036
Patent 12090134 | Expires: May 16, 2036
Patent 12090134 | Expires: May 16, 2036
Patent 12090134 | Expires: May 16, 2036
Patent 12090134 | Expires: May 16, 2036
Patent 12090134 | Expires: May 16, 2036
Patent 12090135 | Expires: May 16, 2036